FAERS Safety Report 8967005 (Version 2)
Quarter: 2013Q1

REPORT INFORMATION
  Report Type: Spontaneous
  Country: IT (occurrence: IT)
  Receive Date: 20121217
  Receipt Date: 20130118
  Transmission Date: 20140127
  Serious: Yes (Other)
  Sender: FDA-Public Use
  Company Number: IT-ELI_LILLY_AND_COMPANY-IT201212001530

PATIENT
  Age: 53 Year
  Sex: Male

DRUGS (5)
  1. ZYPREXA [Suspect]
     Dosage: 5 MG, QD
     Route: 048
  2. ZYPREXA [Suspect]
     Dosage: 80 MG, SINGLE
     Dates: start: 20121202, end: 20121202
  3. RIVOTRIL [Concomitant]
     Dosage: 2 MG, UNKNOWN
     Route: 048
  4. RIVOTRIL [Concomitant]
     Dosage: 16 MG, SINGLE
     Dates: start: 20121202, end: 20121202
  5. SERTRALINE [Concomitant]
     Dosage: 50 MG, QD
     Route: 048

REACTIONS (4)
  - Self injurious behaviour [Recovering/Resolving]
  - Sopor [Recovering/Resolving]
  - Oxygen saturation decreased [Recovering/Resolving]
  - Intentional overdose [Recovered/Resolved]
